FAERS Safety Report 18279413 (Version 1)
Quarter: 2020Q3

REPORT INFORMATION
  Report Type: Spontaneous
  Country: BR (occurrence: BR)
  Receive Date: 20200917
  Receipt Date: 20200917
  Transmission Date: 20201103
  Serious: Yes (Other)
  Sender: FDA-Public Use
  Company Number: BR-JNJFOC-20200927136

PATIENT
  Age: 53 Year
  Sex: Female

DRUGS (2)
  1. TRAMADOL HYDROCHLORIDE. [Suspect]
     Active Substance: TRAMADOL HYDROCHLORIDE
     Indication: PAIN
     Dosage: UNK
     Route: 065
  2. TYLEX                              /00020001/ [Suspect]
     Active Substance: ACETAMINOPHEN
     Indication: PSORIATIC ARTHROPATHY
     Route: 065

REACTIONS (6)
  - Appendix disorder [Recovered/Resolved]
  - Umbilical hernia [Recovered/Resolved]
  - Blister [Unknown]
  - Endometriosis [Recovered/Resolved]
  - Arthralgia [Unknown]
  - Bursitis [Unknown]

NARRATIVE: CASE EVENT DATE: 2018
